FAERS Safety Report 19261820 (Version 1)
Quarter: 2021Q2

REPORT INFORMATION
  Report Type: Spontaneous
  Country: IT (occurrence: IT)
  Receive Date: 20210515
  Receipt Date: 20210515
  Transmission Date: 20210717
  Serious: Yes (Life-Threatening)
  Sender: FDA-Public Use
  Company Number: IT-TEVA-2021-IT-1909560

PATIENT
  Age: 74 Year
  Sex: Male
  Weight: 76 kg

DRUGS (3)
  1. FLUOROURACILE TEVA [Suspect]
     Active Substance: FLUOROURACIL
     Indication: GASTROINTESTINAL ADENOCARCINOMA
     Dosage: 2600 MG/M2
     Route: 042
     Dates: start: 20210120, end: 20210310
  2. DOCETAXEL ACCORD [Suspect]
     Active Substance: DOCETAXEL
     Indication: GASTROINTESTINAL ADENOCARCINOMA
     Dosage: 50 MG/M2
     Route: 042
     Dates: start: 20210120, end: 20210310
  3. OXALIPLATINO TEVA [Suspect]
     Active Substance: OXALIPLATIN
     Indication: GASTROINTESTINAL ADENOCARCINOMA
     Dosage: 85 MG/M2
     Route: 042
     Dates: start: 20210120, end: 20210310

REACTIONS (1)
  - Pulmonary embolism [Unknown]

NARRATIVE: CASE EVENT DATE: 20210324
